FAERS Safety Report 12908715 (Version 3)
Quarter: 2016Q4

REPORT INFORMATION
  Report Type: Spontaneous
  Country: US (occurrence: US)
  Receive Date: 20161103
  Receipt Date: 20161130
  Transmission Date: 20170207
  Serious: Yes (Hospitalization, Other)
  Sender: FDA-Public Use
  Company Number: US-GILEAD-2016-0241466

PATIENT
  Age: 53 Year
  Sex: Male
  Weight: 63.96 kg

DRUGS (3)
  1. GENVOYA [Suspect]
     Active Substance: COBICISTAT\ELVITEGRAVIR\EMTRICITABINE\TENOFOVIR ALAFENAMIDE FUMARATE
     Indication: ACQUIRED IMMUNODEFICIENCY SYNDROME
     Dosage: 1 DF, QD
     Route: 048
     Dates: start: 2016
  2. ITRACONAZOLE. [Suspect]
     Active Substance: ITRACONAZOLE
     Dosage: 2 DF, QD
     Route: 065
  3. ITRACONAZOLE. [Suspect]
     Active Substance: ITRACONAZOLE
     Indication: FUNGAL INFECTION
     Dosage: 3 DF, QD
     Route: 065
     Dates: start: 201609

REACTIONS (3)
  - Rash [Recovered/Resolved]
  - Large intestinal obstruction [Recovered/Resolved]
  - Fungal infection [Recovered/Resolved]

NARRATIVE: CASE EVENT DATE: 20160905
